FAERS Safety Report 4310474-2 (Version None)
Quarter: 2004Q1

REPORT INFORMATION
  Report Type: 
  Country: None (occurrence: None)
  Receive Date: 20040302
  Receipt Date: 20040216
  Transmission Date: 20041129
  Serious: Yes (Hospitalization, Other)
  Sender: FDA-Public Use
  Company Number: 2004-BP-00407NB

PATIENT
  Age: 71 Year
  Sex: Male

DRUGS (2)
  1. MEXITIL [Suspect]
     Dosage: 3300 MG (100 MG)
     Route: 048
     Dates: start: 20040118, end: 20040118
  2. EURODIN (ESTAZOLAM) [Suspect]
     Dosage: 66 MG
     Route: 048
     Dates: start: 20040118, end: 20040118

REACTIONS (3)
  - DEPRESSED LEVEL OF CONSCIOUSNESS [None]
  - RHABDOMYOLYSIS [None]
  - SUICIDE ATTEMPT [None]
